FAERS Safety Report 10544489 (Version 1)
Quarter: 2014Q4

REPORT INFORMATION
  Report Type: Spontaneous
  Country: US (occurrence: None)
  Receive Date: 20141010
  Receipt Date: 20141010
  Transmission Date: 20150529
  Serious: No
  Sender: FDA-Public Use
  Company Number: 163-POMAL-14044776

PATIENT
  Age: 70 Year
  Sex: Female
  Weight: 81.6 kg

DRUGS (9)
  1. POMALYST [Suspect]
     Active Substance: POMALIDOMIDE
     Indication: PLASMA CELL MYELOMA
     Dosage: 4 MG,  21 IN 28 D,  PO
     Route: 048
     Dates: start: 20130419, end: 2013
  2. MIRALAX (MACROGOL) (UNKNOWN) [Concomitant]
  3. VITAMIN D (ERGOCALCIFEROL) (UNKNOWN) [Concomitant]
  4. MULTIVITAMINS (MULTIVITAMINS) (UNKNOWN) [Concomitant]
  5. CALCIUM (CALCIUM) (UNKNOWN) [Concomitant]
  6. ARANESP [Concomitant]
     Active Substance: DARBEPOETIN ALFA
  7. CITRUCEL (METHYLCELLULOSE) (UNKNOWN) [Concomitant]
  8. LEVAQUIN (LEVOFLOXACIN) (TABLETS) [Concomitant]
  9. ACYCLOVIR (ACICLOVIR) (TABLETS) [Concomitant]

REACTIONS (2)
  - Stomatitis [None]
  - Bronchitis [None]

NARRATIVE: CASE EVENT DATE: 20140328
